FAERS Safety Report 4436206-5 (Version None)
Quarter: 2004Q3

REPORT INFORMATION
  Report Type: 
  Country: None (occurrence: None)
  Receive Date: 20040830
  Receipt Date: 20040520
  Transmission Date: 20050211
  Serious: No
  Sender: FDA-Public Use
  Company Number: US-BRISTOL-MYERS SQUIBB COMPANY-12592317

PATIENT
  Sex: Female

DRUGS (4)
  1. ERBITUX [Suspect]
     Route: 042
     Dates: start: 20040501, end: 20040501
  2. DECADRON [Concomitant]
     Indication: PREMEDICATION
     Route: 042
     Dates: start: 20040501, end: 20040501
  3. BENADRYL [Concomitant]
     Indication: PREMEDICATION
     Route: 042
     Dates: start: 20040501, end: 20040501
  4. TYLENOL [Concomitant]
     Indication: PREMEDICATION
     Dates: start: 20040501, end: 20040501

REACTIONS (2)
  - DERMATITIS ACNEIFORM [None]
  - PRURITUS [None]
